FAERS Safety Report 4885516-6 (Version None)
Quarter: 2006Q1

REPORT INFORMATION
  Report Type: 
  Country: None (occurrence: None)
  Receive Date: 20060119
  Receipt Date: 20050406
  Transmission Date: 20060701
  Serious: Yes (Hospitalization, Other)
  Sender: FDA-Public Use
  Company Number: US-MERCK-0504USA01035

PATIENT
  Age: 57 Year
  Sex: Male
  Weight: 77 kg

DRUGS (21)
  1. VIOXX [Suspect]
     Indication: ARTHRITIS
     Route: 048
     Dates: start: 20010101, end: 20040101
  2. CELEBREX [Concomitant]
     Route: 065
  3. MOTRIN [Concomitant]
     Route: 065
  4. NORVASC [Concomitant]
     Route: 065
  5. TYLENOL (CAPLET) [Concomitant]
     Route: 065
  6. PLETAL [Concomitant]
     Route: 065
  7. DURAGESIC-100 [Concomitant]
     Route: 065
  8. DEMEROL [Concomitant]
     Route: 065
  9. AGGRENOX [Concomitant]
     Route: 065
  10. VASOTEC [Concomitant]
     Route: 065
  11. VIAGRA [Concomitant]
     Route: 065
  12. DIOVAN [Concomitant]
     Route: 065
  13. PHENERGAN (DIBROMPROPAMIDINE ISETHIONATE (+) PROMETHAZINE) [Concomitant]
     Route: 065
  14. DETROL [Concomitant]
     Route: 065
  15. ULTRAM [Concomitant]
     Route: 065
  16. VICODIN [Concomitant]
     Route: 065
  17. LOTENSIN [Concomitant]
     Route: 065
  18. AMBIEN [Concomitant]
     Route: 065
  19. LIPITOR [Concomitant]
     Route: 065
  20. CYANOCOBALAMIN [Concomitant]
     Route: 065
  21. NEURONTIN [Concomitant]
     Route: 065

REACTIONS (2)
  - ABASIA [None]
  - CEREBROVASCULAR ACCIDENT [None]
